FAERS Safety Report 23741083 (Version 1)
Quarter: 2024Q2

REPORT INFORMATION
  Report Type: Spontaneous
  Country: US (occurrence: US)
  Receive Date: 20240415
  Receipt Date: 20240415
  Transmission Date: 20240716
  Serious: No
  Sender: FDA-Public Use
  Company Number: US-ABBVIE-5716672

PATIENT
  Sex: Female

DRUGS (2)
  1. LATISSE [Suspect]
     Active Substance: BIMATOPROST
     Indication: Product used for unknown indication
     Dosage: BIMATOPROST SOLUTION 0.03%, 5 MILLIGRAN
     Route: 065
  2. LATISSE [Suspect]
     Active Substance: BIMATOPROST
     Dosage: BIMATOPROST SOLUTION 0.03%, 5 MILLIGRAN
     Route: 065

REACTIONS (2)
  - Eye pruritus [Unknown]
  - Eye irritation [Unknown]
